FAERS Safety Report 12639320 (Version 6)
Quarter: 2017Q1

REPORT INFORMATION
  Report Type: Spontaneous
  Country: US (occurrence: US)
  Receive Date: 20160810
  Receipt Date: 20170313
  Transmission Date: 20170428
  Serious: Yes (Other)
  Sender: FDA-Public Use
  Company Number: PHHY2016US104792

PATIENT
  Sex: Female
  Weight: 90.7 kg

DRUGS (3)
  1. ZOFRAN [Suspect]
     Active Substance: ONDANSETRON HYDROCHLORIDE
     Dosage: 4 MG, UNK
     Route: 048
     Dates: start: 200605, end: 200607
  2. ONDANSETRON HYDROCHLORIDE. [Suspect]
     Active Substance: ONDANSETRON HYDROCHLORIDE
     Indication: PRODUCT USED FOR UNKNOWN INDICATION
     Route: 048
  3. ZOFRAN [Suspect]
     Active Substance: ONDANSETRON HYDROCHLORIDE
     Indication: VOMITING IN PREGNANCY
     Dosage: 4 MG, UNK
     Route: 048
     Dates: start: 20060310, end: 200605

REACTIONS (24)
  - Pain [Unknown]
  - Gastroenteritis [Unknown]
  - Anxiety [Unknown]
  - Product use issue [Unknown]
  - Vaginal haemorrhage [Unknown]
  - Vulval abscess [Unknown]
  - Maternal exposure during pregnancy [Unknown]
  - Cellulitis [Unknown]
  - Iron deficiency anaemia [Unknown]
  - Anaemia [Unknown]
  - Gastrooesophageal reflux disease [Unknown]
  - Vaginal discharge [Unknown]
  - Insomnia [Unknown]
  - Influenza [Unknown]
  - Pre-eclampsia [Unknown]
  - Emotional distress [Unknown]
  - Depression [Unknown]
  - Photophobia [Unknown]
  - Chest pain [Unknown]
  - Bacterial vaginosis [Unknown]
  - Abscess limb [Unknown]
  - Tachycardia [Unknown]
  - Subcutaneous abscess [Unknown]
  - Urinary tract infection [Unknown]
